FAERS Safety Report 11110933 (Version 4)
Quarter: 2015Q3

REPORT INFORMATION
  Report Type: Spontaneous
  Country: US (occurrence: US)
  Receive Date: 20150513
  Receipt Date: 20150714
  Transmission Date: 20151125
  Serious: Yes (Other)
  Sender: FDA-Public Use
  Company Number: US-LUNDBECK-DKLU1112272

PATIENT
  Age: 77 Year
  Sex: Male
  Weight: 82 kg

DRUGS (25)
  1. NORTHERA [Suspect]
     Active Substance: DROXIDOPA
     Indication: PARKINSON^S DISEASE
     Route: 048
     Dates: start: 20150423
  2. NORTHERA [Suspect]
     Active Substance: DROXIDOPA
     Dosage: TITRATION
     Route: 048
  3. NORTHERA [Suspect]
     Active Substance: DROXIDOPA
     Route: 065
     Dates: start: 20150422
  4. NORTHERA [Suspect]
     Active Substance: DROXIDOPA
     Dosage: TITRATION
     Route: 048
  5. NORTHERA [Suspect]
     Active Substance: DROXIDOPA
     Dosage: TITRATION
     Route: 048
  6. NORTHERA [Suspect]
     Active Substance: DROXIDOPA
     Dosage: TITRATION
     Route: 048
  7. NORTHERA [Suspect]
     Active Substance: DROXIDOPA
     Dosage: TITRATION
     Route: 048
  8. NORTHERA [Suspect]
     Active Substance: DROXIDOPA
     Dosage: TITRATION
     Route: 048
  9. NORTHERA [Suspect]
     Active Substance: DROXIDOPA
     Dosage: TITRATION
     Route: 048
  10. NORTHERA [Suspect]
     Active Substance: DROXIDOPA
     Dosage: TITRATION
     Route: 048
  11. NAMENDA [Concomitant]
     Active Substance: MEMANTINE HYDROCHLORIDE
     Indication: PRODUCT USED FOR UNKNOWN INDICATION
     Route: 065
  12. NORTHERA [Suspect]
     Active Substance: DROXIDOPA
     Route: 065
     Dates: start: 20150508
  13. NORTHERA [Suspect]
     Active Substance: DROXIDOPA
     Dosage: TITRATION
     Route: 048
  14. NORTHERA [Suspect]
     Active Substance: DROXIDOPA
     Dosage: TITRATION
     Route: 048
  15. NORTHERA [Suspect]
     Active Substance: DROXIDOPA
     Route: 065
     Dates: start: 20150510
  16. NORTHERA [Suspect]
     Active Substance: DROXIDOPA
     Dosage: TITRATION
     Route: 048
  17. NORTHERA [Suspect]
     Active Substance: DROXIDOPA
     Dosage: TITRATION
     Route: 048
  18. NORTHERA [Suspect]
     Active Substance: DROXIDOPA
     Dosage: TITRATION
     Route: 048
  19. NORTHERA [Suspect]
     Active Substance: DROXIDOPA
     Dosage: TITRATION
     Route: 048
  20. ARICEPT [Concomitant]
     Active Substance: DONEPEZIL HYDROCHLORIDE
     Indication: DEMENTIA
     Route: 065
  21. NORTHERA [Suspect]
     Active Substance: DROXIDOPA
     Dosage: TITRATION
     Route: 048
  22. NORTHERA [Suspect]
     Active Substance: DROXIDOPA
     Dosage: TITRATION
     Route: 048
  23. CARBIDOPA/LEVODOPA [Concomitant]
     Active Substance: CARBIDOPA\LEVODOPA
     Indication: PARKINSON^S DISEASE
     Route: 065
  24. NORTHERA [Suspect]
     Active Substance: DROXIDOPA
     Dosage: TITRATION
     Route: 048
  25. NORTHERA [Suspect]
     Active Substance: DROXIDOPA
     Dosage: TITRATION
     Route: 048

REACTIONS (6)
  - Erythema [Not Recovered/Not Resolved]
  - Blood pressure increased [Unknown]
  - Rib fracture [Unknown]
  - Chest injury [Not Recovered/Not Resolved]
  - Dementia [Not Recovered/Not Resolved]
  - Fall [Recovered/Resolved with Sequelae]

NARRATIVE: CASE EVENT DATE: 20150506
